FAERS Safety Report 25673088 (Version 2)
Quarter: 2025Q3

REPORT INFORMATION
  Report Type: Report from Study
  Country: CN (occurrence: CN)
  Receive Date: 20250813
  Receipt Date: 20250911
  Transmission Date: 20251021
  Serious: Yes (Death, Hospitalization, Other)
  Sender: TAKEDA
  Company Number: CN-TAKEDA-2025TUS070982

PATIENT
  Age: 70 Year
  Sex: Female

DRUGS (3)
  1. IXAZOMIB [Suspect]
     Active Substance: IXAZOMIB
     Indication: Plasma cell myeloma
  2. DEXAMETHASONE [Suspect]
     Active Substance: DEXAMETHASONE
     Indication: Plasma cell myeloma
  3. POMALIDOMIDE [Suspect]
     Active Substance: POMALIDOMIDE
     Indication: Plasma cell myeloma

REACTIONS (3)
  - Death [Fatal]
  - Plasma cell myeloma refractory [Unknown]
  - Pneumonia [Unknown]

NARRATIVE: CASE EVENT DATE: 20250812
